FAERS Safety Report 16703702 (Version 1)
Quarter: 2019Q3

REPORT INFORMATION
  Report Type: Report from Study
  Country: IL (occurrence: IL)
  Receive Date: 20190814
  Receipt Date: 20190814
  Transmission Date: 20191004
  Serious: Yes (Hospitalization)
  Sender: FDA-Public Use
  Company Number: IL-ROCHE-2379660

PATIENT
  Sex: Female

DRUGS (7)
  1. LYRICA [Concomitant]
     Active Substance: PREGABALIN
  2. LOSEC [Concomitant]
     Active Substance: OMEPRAZOLE
  3. VIT D [Concomitant]
     Active Substance: VITAMIN D NOS
  4. BACLOSAL [Concomitant]
     Active Substance: BACLOFEN
  5. DILATAM [Concomitant]
     Active Substance: DILTIAZEM HYDROCHLORIDE
     Indication: BLOOD PRESSURE MEASUREMENT
  6. SIMOVIL [Concomitant]
     Active Substance: SIMVASTATIN
  7. OCREVUS [Suspect]
     Active Substance: OCRELIZUMAB
     Indication: RELAPSING MULTIPLE SCLEROSIS
     Route: 042
     Dates: start: 20180903

REACTIONS (1)
  - Multiple sclerosis relapse [Not Recovered/Not Resolved]
